FAERS Safety Report 5254819-8 (Version None)
Quarter: 2007Q1

REPORT INFORMATION
  Report Type: 
  Country: None (occurrence: None)
  Receive Date: 20070305
  Receipt Date: 20070220
  Transmission Date: 20070707
  Serious: Yes (Death, Hospitalization)
  Sender: FDA-Public Use
  Company Number: CH-ELI_LILLY_AND_COMPANY-CH200702004481

PATIENT
  Sex: Male

DRUGS (1)
  1. ZYPREXA [Suspect]
     Dosage: UNK MG, UNK
     Dates: start: 20061101

REACTIONS (3)
  - MYOCARDIAL INFARCTION [None]
  - OEDEMA [None]
  - PRESCRIBED OVERDOSE [None]
